FAERS Safety Report 7535719-7 (Version None)
Quarter: 2011Q2

REPORT INFORMATION
  Report Type: 
  Country: None (occurrence: None)
  Receive Date: 20110524
  Receipt Date: 20110412
  Transmission Date: 20111010
  Serious: No
  Sender: FDA-Public Use
  Company Number: 031106

PATIENT
  Sex: Female
  Weight: 65.8 kg

DRUGS (4)
  1. TYLENOL (CAPLET) [Concomitant]
  2. CIMZIA [Suspect]
     Indication: RHEUMATOID ARTHRITIS
     Dosage: (400 MG 1X/2 WEEKS SUBCUTANEOUS)
     Route: 058
     Dates: start: 20110328
  3. ULTRAM [Concomitant]
  4. PERCOCET [Concomitant]

REACTIONS (4)
  - INFLUENZA LIKE ILLNESS [None]
  - DECREASED APPETITE [None]
  - FATIGUE [None]
  - ASTHENIA [None]
